FAERS Safety Report 23097171 (Version 2)
Quarter: 2023Q4

REPORT INFORMATION
  Report Type: Spontaneous
  Country: US (occurrence: US)
  Receive Date: 20231023
  Receipt Date: 20231116
  Transmission Date: 20240110
  Serious: No
  Sender: FDA-Public Use
  Company Number: US-BAYER-2023A145096

PATIENT
  Sex: Female

DRUGS (1)
  1. CLIMARA [Suspect]
     Active Substance: ESTRADIOL
     Route: 062

REACTIONS (5)
  - Drug ineffective [None]
  - Blood pressure decreased [None]
  - Suspected counterfeit product [None]
  - Expired device used [None]
  - Product packaging counterfeit [None]
